FAERS Safety Report 19467643 (Version 3)
Quarter: 2022Q2

REPORT INFORMATION
  Report Type: Spontaneous
  Country: US (occurrence: None)
  Receive Date: 20210628
  Receipt Date: 20220506
  Transmission Date: 20220721
  Serious: Yes (Death, Other)
  Sender: FDA-Public Use
  Company Number: 2021A558590

PATIENT
  Age: 19483 Day
  Sex: Female
  Weight: 61.9 kg

DRUGS (40)
  1. NEXIUM [Suspect]
     Active Substance: ESOMEPRAZOLE MAGNESIUM
     Indication: Gastrooesophageal reflux disease
     Route: 048
  2. NEXIUM 24HR [Suspect]
     Active Substance: ESOMEPRAZOLE MAGNESIUM
     Indication: Gastrooesophageal reflux disease
     Route: 048
     Dates: start: 2014, end: 2019
  3. FENOFIBRATE [Concomitant]
     Active Substance: FENOFIBRATE
  4. LIPITOR [Concomitant]
     Active Substance: ATORVASTATIN CALCIUM
  5. LESCOL [Concomitant]
     Active Substance: FLUVASTATIN SODIUM
  6. ZOCOR [Concomitant]
     Active Substance: SIMVASTATIN
  7. CRESTOR [Concomitant]
     Active Substance: ROSUVASTATIN CALCIUM
  8. BENADRYL [Concomitant]
     Active Substance: DIPHENHYDRAMINE HYDROCHLORIDE
  9. LANTUS [Concomitant]
     Active Substance: INSULIN GLARGINE
  10. NIFEDIPINE [Concomitant]
     Active Substance: NIFEDIPINE
  11. NOVOLOG [Concomitant]
     Active Substance: INSULIN ASPART
  12. ZOFRAN [Concomitant]
     Active Substance: ONDANSETRON HYDROCHLORIDE
  13. ALBUTEROL [Concomitant]
     Active Substance: ALBUTEROL
  14. PHOSLO [Concomitant]
     Active Substance: CALCIUM ACETATE
  15. ADVAIR HFA [Concomitant]
     Active Substance: FLUTICASONE PROPIONATE\SALMETEROL XINAFOATE
  16. CALCIUM ACETATE [Concomitant]
     Active Substance: CALCIUM ACETATE
  17. CARVEDILOL [Concomitant]
     Active Substance: CARVEDILOL
  18. DIPHENHYDRAMINE [Concomitant]
     Active Substance: DIPHENHYDRAMINE
  19. FLUOXETINE [Concomitant]
     Active Substance: FLUOXETINE HYDROCHLORIDE
  20. GABAPENTIN [Concomitant]
     Active Substance: GABAPENTIN
  21. HYDRALAZINE [Concomitant]
     Active Substance: HYDRALAZINE HYDROCHLORIDE
  22. MELATONIN [Concomitant]
     Active Substance: MELATONIN
  23. METOCLOPRAMIDE [Concomitant]
     Active Substance: METOCLOPRAMIDE
  24. MULTIVITAMIN IRON [Concomitant]
  25. ALBUMIN NOS/DARBEPOETIN ALFA [Concomitant]
  26. ONDANSETRON [Concomitant]
     Active Substance: ONDANSETRON
  27. HEPARIN [Concomitant]
     Active Substance: HEPARIN SODIUM
  28. IPRATROPIUM BROMIDE [Concomitant]
     Active Substance: IPRATROPIUM BROMIDE
  29. REGLAN [Concomitant]
     Active Substance: METOCLOPRAMIDE HYDROCHLORIDE
  30. LORAZEPAM [Concomitant]
     Active Substance: LORAZEPAM
  31. GUAIFENESIN [Concomitant]
     Active Substance: GUAIFENESIN
  32. ATORVASTATIN [Concomitant]
     Active Substance: ATORVASTATIN
  33. CLONIDINE [Concomitant]
     Active Substance: CLONIDINE
  34. INSULIN NOS [Concomitant]
     Active Substance: INSULIN NOS
  35. RENAPLEX [Concomitant]
  36. CHOLECALCIFEROL [Concomitant]
     Active Substance: CHOLECALCIFEROL
  37. FOSRENOL [Concomitant]
     Active Substance: LANTHANUM CARBONATE
  38. HUMALOG [Concomitant]
     Active Substance: INSULIN LISPRO
  39. IPRATROPIUM [Concomitant]
     Active Substance: IPRATROPIUM
  40. ALTEPLASE [Concomitant]
     Active Substance: ALTEPLASE

REACTIONS (6)
  - End stage renal disease [Fatal]
  - Hypertension [Fatal]
  - Chronic kidney disease [Unknown]
  - Nephrogenic anaemia [Unknown]
  - Hyperparathyroidism secondary [Unknown]
  - Chronic kidney disease-mineral and bone disorder [Unknown]

NARRATIVE: CASE EVENT DATE: 20120716
